FAERS Safety Report 4327535-4 (Version None)
Quarter: 2004Q1

REPORT INFORMATION
  Report Type: 
  Country: None (occurrence: None)
  Receive Date: 20040325
  Receipt Date: 20040317
  Transmission Date: 20041129
  Serious: Yes (Other)
  Sender: FDA-Public Use
  Company Number: HQWYE688610MAR04

PATIENT
  Age: 17 Year
  Sex: Female

DRUGS (4)
  1. MINOCYCLINE HCL [Suspect]
     Indication: BRONCHITIS
     Dosage: ORAL
     Route: 048
  2. CARBOCISTEINE (CARBOCISTEINE) [Suspect]
  3. LORATADINE [Concomitant]
  4. TIPEPIDINE HIBENZATE (TIPEPIDINE HIBENZATE) [Concomitant]

REACTIONS (1)
  - LIVER DISORDER [None]
